FAERS Safety Report 8059981-X (Version None)
Quarter: 2012Q1

REPORT INFORMATION
  Report Type: 
  Country: None (occurrence: None)
  Receive Date: 20120120
  Receipt Date: 20120105
  Transmission Date: 20120608
  Serious: Yes (Death, Hospitalization)
  Sender: FDA-Public Use
  Company Number: TW-WATSON-2012-00474

PATIENT
  Age: 36 Year
  Sex: Female

DRUGS (16)
  1. MOCLOBEMIDE [Suspect]
     Dosage: 50 MG, TID
  2. MOCLOBEMIDE [Suspect]
     Indication: PRODUCT USED FOR UNKNOWN INDICATION
     Dosage: 4500 MG, SINGLE
     Route: 048
  3. PROPRANOLOL [Suspect]
     Dosage: 10 MG, TID
  4. ESTAZOLAM [Suspect]
     Dosage: 2 MG, QHS
  5. FLUOXETINE HCL [Suspect]
     Dosage: 20 MG, DAILY
  6. PROPRANOLOL [Suspect]
     Indication: PRODUCT USED FOR UNKNOWN INDICATION
     Dosage: 300 MG, SINGLE
     Route: 048
  7. ALPRAZOLAM [Suspect]
     Dosage: 0.5 MG, TID
  8. LORAZEPAM [Suspect]
     Indication: PRODUCT USED FOR UNKNOWN INDICATION
     Dosage: 10 MG, SINGLE
     Route: 048
  9. FLUOXETINE HCL [Suspect]
     Indication: PRODUCT USED FOR UNKNOWN INDICATION
     Dosage: 200 MG, SINGLE
     Route: 048
  10. ALPRAZOLAM [Suspect]
     Indication: PRODUCT USED FOR UNKNOWN INDICATION
     Dosage: 15 MG, SINGLE
     Route: 048
  11. BROMAZEPAM (UNKNOWN) [Suspect]
     Indication: PRODUCT USED FOR UNKNOWN INDICATION
     Dosage: 60 MG, SINGLE
     Route: 048
  12. LORAZEPAM [Suspect]
     Dosage: 1 MG, QHS
  13. ESTAZOLAM [Suspect]
     Indication: PRODUCT USED FOR UNKNOWN INDICATION
     Dosage: 20 MG, SINGLE
     Route: 048
  14. BROMAZEPAM (UNKNOWN) [Suspect]
     Dosage: 6 MG, QHS
  15. MIDAZOLAM [Suspect]
     Dosage: 7.5 MG, QHS
  16. MIDAZOLAM [Suspect]
     Indication: PRODUCT USED FOR UNKNOWN INDICATION
     Dosage: 75 MG, SINGLE
     Route: 048

REACTIONS (4)
  - SEROTONIN SYNDROME [None]
  - CIRCULATORY COLLAPSE [None]
  - MULTIPLE DRUG OVERDOSE INTENTIONAL [None]
  - DISSEMINATED INTRAVASCULAR COAGULATION [None]
